FAERS Safety Report 4390833-2 (Version None)
Quarter: 2004Q3

REPORT INFORMATION
  Report Type: 
  Country: None (occurrence: None)
  Receive Date: 20040706
  Receipt Date: 20040706
  Transmission Date: 20050211
  Serious: No
  Sender: FDA-Public Use
  Company Number: None

PATIENT
  Age: 58 Year
  Sex: Female
  Weight: 76.2043 kg

DRUGS (4)
  1. LIPITOR [Suspect]
     Dosage: 10 MG DAILY ORAL
     Route: 048
     Dates: start: 20040324, end: 20040611
  2. LEXAPRO [Concomitant]
  3. TRIAM/HCTZ [Concomitant]
  4. DYAZIDE [Concomitant]

REACTIONS (12)
  - AMNESIA [None]
  - ASTHENIA [None]
  - BALANCE DISORDER [None]
  - DIARRHOEA [None]
  - DIFFICULTY IN WALKING [None]
  - DIZZINESS [None]
  - DRUG TOXICITY [None]
  - DYSSTASIA [None]
  - MUSCLE ATROPHY [None]
  - MYALGIA [None]
  - PAIN IN EXTREMITY [None]
  - WEIGHT INCREASED [None]
